FAERS Safety Report 16592982 (Version 1)
Quarter: 2019Q3

REPORT INFORMATION
  Report Type: Report from Study
  Country: US (occurrence: US)
  Receive Date: 20190718
  Receipt Date: 20190718
  Transmission Date: 20191004
  Serious: Yes (Death)
  Sender: FDA-Public Use
  Company Number: US-INCYTE CORPORATION-2019IN005950

PATIENT

DRUGS (1)
  1. JAKAFI [Suspect]
     Active Substance: RUXOLITINIB
     Indication: POLYCYTHAEMIA VERA
     Dosage: 10 MILLIGRAM, BID
     Route: 048
     Dates: start: 20160401, end: 20180215

REACTIONS (3)
  - Diarrhoea [Unknown]
  - Fatigue [Unknown]
  - Neutrophil count abnormal [Unknown]

NARRATIVE: CASE EVENT DATE: 20170215
